FAERS Safety Report 22379775 (Version 46)
Quarter: 2025Q1

REPORT INFORMATION
  Report Type: Report from Study
  Country: CO (occurrence: CO)
  Receive Date: 20230529
  Receipt Date: 20250320
  Transmission Date: 20250408
  Serious: Yes (Hospitalization, Other)
  Sender: TAKEDA
  Company Number: CO-TAKEDA-2023TUS027271

PATIENT
  Age: 6 Year
  Sex: Male
  Weight: 8 kg

DRUGS (5)
  1. TEDUGLUTIDE [Suspect]
     Active Substance: TEDUGLUTIDE
     Indication: Short-bowel syndrome
     Dosage: 0.9 MILLIGRAM, QD
     Dates: start: 20230414
  2. TEDUGLUTIDE [Suspect]
     Active Substance: TEDUGLUTIDE
     Dosage: 1 MILLIGRAM, QD
     Dates: end: 20241226
  3. TEDUGLUTIDE [Suspect]
     Active Substance: TEDUGLUTIDE
  4. TEDUGLUTIDE [Suspect]
     Active Substance: TEDUGLUTIDE
  5. Somatropina [Concomitant]

REACTIONS (18)
  - Vascular device infection [Unknown]
  - Lactic acidosis [Unknown]
  - Respiratory tract infection [Unknown]
  - Weight increased [Unknown]
  - Product availability issue [Unknown]
  - Weight decreased [Unknown]
  - Pyrexia [Unknown]
  - Hyperhidrosis [Unknown]
  - Illness [Unknown]
  - Treatment noncompliance [Unknown]
  - Product quality issue [Unknown]
  - Product prescribing error [Unknown]
  - Product storage error [Unknown]
  - Incorrect dose administered [Unknown]
  - Malaise [Unknown]
  - Product prescribing issue [Unknown]
  - Influenza like illness [Unknown]
  - Cough [Unknown]

NARRATIVE: CASE EVENT DATE: 20230521
